FAERS Safety Report 6749977-X (Version None)
Quarter: 2010Q2

REPORT INFORMATION
  Report Type: 
  Country: None (occurrence: None)
  Receive Date: 20100601
  Receipt Date: 20100521
  Transmission Date: 20101027
  Serious: Yes (Other)
  Sender: FDA-Public Use
  Company Number: US-JNJCH-2010012857

PATIENT
  Age: 52 Year
  Sex: Female
  Weight: 141.5 kg

DRUGS (11)
  1. EXTRA STRENGTH ROLAIDS SOFTCHEWS WILD CHERRY [Suspect]
     Indication: DYSPEPSIA
     Dosage: TEXT:2 TABLETS OVER A 24 HOUR PERIOD
     Route: 048
     Dates: start: 20100514, end: 20100521
  2. LISINOPRIL [Concomitant]
     Indication: HYPERTENSION
     Route: 065
  3. HYDROCHLOROTHIAZIDE [Concomitant]
     Indication: HYPERTENSION
     Route: 065
  4. LASIX [Concomitant]
     Indication: HYPERTENSION
     Route: 065
  5. NEURONTIN [Concomitant]
     Indication: SPINAL COLUMN STENOSIS
     Route: 065
  6. ZANAFLEX [Concomitant]
     Indication: SPINAL COLUMN STENOSIS
     Route: 065
  7. WELLBUTRIN SR [Concomitant]
     Indication: DEPRESSION
     Route: 065
  8. ALBUTEROL [Concomitant]
     Indication: ASTHMA
     Route: 065
  9. COMBIVENT [Concomitant]
     Indication: ASTHMA
     Route: 065
  10. FLONASE [Concomitant]
     Indication: ASTHMA
     Dosage: TEXT:1 - 50MCQ - ONCE DAILY
     Route: 065
  11. ACETAMINOPHEN AND HYDROCODONE BITARTRATE [Concomitant]
     Indication: PAIN
     Route: 065

REACTIONS (3)
  - GINGIVAL INJURY [None]
  - ORAL PAIN [None]
  - PRODUCT CONTAMINATION PHYSICAL [None]
